FAERS Safety Report 13838913 (Version 1)
Quarter: 2017Q3

REPORT INFORMATION
  Report Type: Spontaneous
  Country: US (occurrence: US)
  Receive Date: 20170807
  Receipt Date: 20170807
  Transmission Date: 20171127
  Serious: No
  Sender: FDA-Public Use
  Company Number: US-PFIZER INC-2017338365

PATIENT
  Sex: Female

DRUGS (2)
  1. GABAPENTIN. [Suspect]
     Active Substance: GABAPENTIN
     Dosage: 600 MG, 2X/DAY
  2. GABAPENTIN. [Suspect]
     Active Substance: GABAPENTIN
     Dosage: 600 MG, 3X/DAY

REACTIONS (13)
  - Arthralgia [Unknown]
  - Fatigue [Unknown]
  - Somnolence [Unknown]
  - Body mass index increased [Unknown]
  - Back pain [Unknown]
  - Depression [Unknown]
  - Sleep disorder [Unknown]
  - Oedema peripheral [Unknown]
  - Dry mouth [Unknown]
  - Anxiety [Unknown]
  - Neck pain [Unknown]
  - Nodal osteoarthritis [Unknown]
  - Pain in extremity [Unknown]
